FAERS Safety Report 17398582 (Version 1)
Quarter: 2020Q1

REPORT INFORMATION
  Report Type: Spontaneous
  Country: JP (occurrence: JP)
  Receive Date: 20200210
  Receipt Date: 20200210
  Transmission Date: 20200409
  Serious: Yes (Death, Other)
  Sender: FDA-Public Use
  Company Number: JP-BRISTOL-MYERS SQUIBB COMPANY-BMS-2018-125301

PATIENT
  Age: 50 Year
  Sex: Male
  Weight: 39.5 kg

DRUGS (10)
  1. OPDIVO [Suspect]
     Active Substance: NIVOLUMAB
     Indication: HEAD AND NECK CANCER
     Dosage: 132 MILLIGRAM, QD
     Route: 041
     Dates: start: 20171019, end: 20171212
  2. NAIXAN [NAPROXEN] [Concomitant]
     Active Substance: NAPROXEN
     Indication: TUMOUR ASSOCIATED FEVER
     Dosage: 200 MILLIGRAM, Q12H
     Route: 048
     Dates: start: 20180117, end: 20180126
  3. LORAZEPAM TOWA [Concomitant]
     Indication: NAUSEA
     Dosage: 0.5 MILLIGRAM, Q8H
     Route: 048
     Dates: start: 20171102
  4. LANSOPRAZOLE. [Concomitant]
     Active Substance: LANSOPRAZOLE
     Indication: ABDOMINAL DISCOMFORT
     Dosage: 15 MILLIGRAM, QD
     Route: 048
     Dates: start: 20170707
  5. CALONAL [Concomitant]
     Active Substance: ACETAMINOPHEN
     Indication: PAIN
     Dosage: 400 MILLIGRAM, Q8H
     Route: 048
     Dates: start: 20170321
  6. NAUZELIN [Concomitant]
     Active Substance: DOMPERIDONE
     Indication: NAUSEA
     Dosage: 10 MILLIGRAM, Q8H
     Route: 048
     Dates: start: 20170730
  7. MAGNESIUM OXIDE. [Concomitant]
     Active Substance: MAGNESIUM OXIDE
     Indication: CONSTIPATION
     Dosage: 660 MILLIGRAM, Q8H
     Route: 048
     Dates: start: 20170718
  8. TRAVELMIN [BETAHISTINE HYDROCHLORIDE] [Concomitant]
     Active Substance: BETAHISTINE HYDROCHLORIDE
     Indication: NAUSEA
     Dosage: 1 DOSAGE FORM, Q8H
     Route: 048
     Dates: start: 20171027
  9. FENTOS [Concomitant]
     Active Substance: FENTANYL
     Indication: PAIN
     Dosage: 8 MILLIGRAM, QD
     Route: 062
     Dates: start: 20170729
  10. SYMPROIC [Concomitant]
     Active Substance: NALDEMEDINE
     Indication: CONSTIPATION
     Dosage: 0.2 MILLIGRAM, QD
     Route: 048
     Dates: start: 20171027

REACTIONS (1)
  - Death [Fatal]

NARRATIVE: CASE EVENT DATE: 20181201
